FAERS Safety Report 10923643 (Version 2)
Quarter: 2015Q2

REPORT INFORMATION
  Report Type: Spontaneous
  Country: US (occurrence: US)
  Receive Date: 20150318
  Receipt Date: 20150526
  Transmission Date: 20150821
  Serious: No
  Sender: FDA-Public Use
  Company Number: US-JNJFOC-20141216870

PATIENT
  Age: 29 Year
  Sex: Male

DRUGS (5)
  1. OLANZAPINE. [Concomitant]
     Active Substance: OLANZAPINE
     Route: 065
  2. HALOPERIDOL DECANOATE. [Suspect]
     Active Substance: HALOPERIDOL DECANOATE
     Indication: SCHIZOPHRENIA
     Route: 065
  3. HALOPERIDOL DECANOATE. [Suspect]
     Active Substance: HALOPERIDOL DECANOATE
     Indication: SCHIZOPHRENIA
     Route: 065
  4. HALOPERIDOL DECANOATE. [Suspect]
     Active Substance: HALOPERIDOL DECANOATE
     Indication: SCHIZOPHRENIA
     Route: 065
  5. DIVALPROEX [Concomitant]
     Active Substance: DIVALPROEX SODIUM
     Route: 065

REACTIONS (1)
  - Drug effect decreased [Unknown]
